FAERS Safety Report 8531721-7 (Version None)
Quarter: 2012Q3

REPORT INFORMATION
  Report Type: 
  Country: None (occurrence: None)
  Receive Date: 20120723
  Receipt Date: 20120720
  Transmission Date: 20120928
  Serious: Yes (Other)
  Sender: FDA-Public Use
  Company Number: US-PFIZER INC-2012176709

PATIENT
  Sex: Female
  Weight: 113.38 kg

DRUGS (3)
  1. MEDROL [Suspect]
     Dosage: 8 MG, UNK
     Route: 048
  2. MEDROL [Suspect]
     Indication: LIVER DISORDER
     Dosage: 12 MG (ONE 8MG TABLET+ONE 4MG TABLET), UNK
     Route: 048
  3. IMURAN [Concomitant]
     Dosage: UNK

REACTIONS (6)
  - DIABETES MELLITUS [None]
  - WHITE BLOOD CELL COUNT INCREASED [None]
  - VISUAL ACUITY REDUCED [None]
  - HYPERTENSION [None]
  - WEIGHT INCREASED [None]
  - LIVER FUNCTION TEST ABNORMAL [None]
